FAERS Safety Report 21507981 (Version 1)
Quarter: 2022Q4

REPORT INFORMATION
  Report Type: Spontaneous
  Country: US (occurrence: US)
  Receive Date: 20221026
  Receipt Date: 20221026
  Transmission Date: 20230113
  Serious: Yes (Hospitalization, Other)
  Sender: FDA-Public Use
  Company Number: US-JUBILANT CADISTA PHARMACEUTICALS-2022JUB00360

PATIENT
  Age: 59 Year
  Sex: Male
  Weight: 71 kg

DRUGS (6)
  1. PREDNISONE [Suspect]
     Active Substance: PREDNISONE
     Indication: Immunosuppressant drug therapy
     Dosage: 15 MG, 1X/DAY
  2. MYCOPHENOLATE MOFETIL [Suspect]
     Active Substance: MYCOPHENOLATE MOFETIL
     Indication: Immunosuppressant drug therapy
     Dosage: 1000 MG, EVERY 12 HOURS
  3. TACROLIMUS [Suspect]
     Active Substance: TACROLIMUS
     Indication: Immunosuppressant drug therapy
     Dosage: 2 MG, EVERY 12 HOURS
  4. SULFAMETHOXAZOLE 400 mg TRIMETHOPRIM 80 mg [Concomitant]
     Dosage: 1 DOSAGE FORM, 1X/DAY
  5. VALGANCICLOVIR [Concomitant]
     Active Substance: VALGANCICLOVIR
     Dosage: 900 MG, 1X/DAY
  6. FLUCONAZOLE [Concomitant]
     Active Substance: FLUCONAZOLE
     Dosage: 200 MG, 1X/DAY

REACTIONS (7)
  - Periorbital cellulitis [Not Recovered/Not Resolved]
  - Nocardiosis [Not Recovered/Not Resolved]
  - Cytotoxic lesions of corpus callosum [Recovering/Resolving]
  - Osteomyelitis [Not Recovered/Not Resolved]
  - Pulmonary nocardiosis [Recovered/Resolved]
  - Sinusitis [Not Recovered/Not Resolved]
  - Brain abscess [Recovering/Resolving]
